FAERS Safety Report 23793241 (Version 1)
Quarter: 2024Q2

REPORT INFORMATION
  Report Type: Spontaneous
  Country: US (occurrence: US)
  Receive Date: 20240429
  Receipt Date: 20240429
  Transmission Date: 20240715
  Serious: No
  Sender: FDA-Public Use
  Company Number: US-BRISTOL-MYERS SQUIBB COMPANY-2024-066057

PATIENT
  Age: 64 Year
  Sex: Female
  Weight: 66.9 kg

DRUGS (3)
  1. OPDIVO [Suspect]
     Active Substance: NIVOLUMAB
     Indication: Pancreatic carcinoma
     Route: 042
  2. YERVOY [Suspect]
     Active Substance: IPILIMUMAB
     Indication: Pancreatic carcinoma
     Route: 042
  3. VITAMINS NOS [Concomitant]
     Active Substance: VITAMINS
     Indication: Product used for unknown indication

REACTIONS (2)
  - Rash [Unknown]
  - Off label use [Unknown]

NARRATIVE: CASE EVENT DATE: 20240211
